FAERS Safety Report 23950586 (Version 2)
Quarter: 2024Q3

REPORT INFORMATION
  Report Type: Spontaneous
  Country: US (occurrence: US)
  Receive Date: 20240607
  Receipt Date: 20240813
  Transmission Date: 20241016
  Serious: Yes (Other)
  Sender: BRAEBURN PHARMACEUTICALS
  Company Number: US-BRAEBURN-US-BRA-24-000503

PATIENT
  Age: 28 Year
  Sex: Male

DRUGS (2)
  1. BRIXADI [Suspect]
     Active Substance: BUPRENORPHINE
     Indication: Pain
     Dosage: UNK, UNK
     Route: 065
  2. BRIXADI [Suspect]
     Active Substance: BUPRENORPHINE
     Indication: Drug dependence

REACTIONS (2)
  - Central sleep apnoea syndrome [Unknown]
  - Product use in unapproved indication [Unknown]
